FAERS Safety Report 10019168 (Version 1)
Quarter: 2014Q1

REPORT INFORMATION
  Report Type: Spontaneous
  Country: US (occurrence: None)
  Receive Date: 20140314
  Receipt Date: 20140314
  Transmission Date: 20141002
  Serious: Yes (Other)
  Sender: FDA-Public Use
  Company Number: None

PATIENT
  Age: 40 Year
  Sex: Female
  Weight: 68.7 kg

DRUGS (7)
  1. DOCETAXEL [Suspect]
     Indication: BREAST CANCER
     Dosage: TOTAL OF 4 CYCLES PLANNED
  2. CYCLOPHOSPHAMIDE [Suspect]
     Indication: BREAST CANCER
     Dosage: 4 CYCLES
  3. ALBUTEROL [Concomitant]
  4. DEXAMETHASONE [Concomitant]
  5. HYDROCHLOROTHIAZIDE-TRIMATERENE [Concomitant]
  6. LORAZEPAM [Concomitant]
  7. PROCHLORPERAZINE [Concomitant]

REACTIONS (2)
  - Infusion site pruritus [None]
  - Scab [None]
